FAERS Safety Report 6333294-6 (Version None)
Quarter: 2009Q3

REPORT INFORMATION
  Report Type: 
  Country: None (occurrence: None)
  Receive Date: 20090826
  Receipt Date: 20090804
  Transmission Date: 20100115
  Serious: Yes (Hospitalization)
  Sender: FDA-Public Use
  Company Number: 2009-190406-NL

PATIENT
  Age: 31 Year
  Sex: Female
  Weight: 54.4 kg

DRUGS (8)
  1. NUVARING [Suspect]
     Indication: CONTRACEPTION
     Dosage: 1 DF;
     Dates: start: 20060601, end: 20061005
  2. SYNTHROID [Concomitant]
  3. PERCOCET [Concomitant]
  4. PHENERGAN [Concomitant]
  5. LEXAPRO [Concomitant]
  6. INDERAL [Concomitant]
  7. IMITREX [Concomitant]
  8. CARISOPRODOL [Concomitant]

REACTIONS (11)
  - ALOPECIA [None]
  - ATELECTASIS [None]
  - CHEST PAIN [None]
  - FATIGUE [None]
  - GOITRE [None]
  - INTERNATIONAL NORMALISED RATIO INCREASED [None]
  - PLEURISY [None]
  - PULMONARY EMBOLISM [None]
  - RAYNAUD'S PHENOMENON [None]
  - SJOGREN'S SYNDROME [None]
  - SYSTEMIC LUPUS ERYTHEMATOSUS [None]
